FAERS Safety Report 6551086-X (Version None)
Quarter: 2010Q1

REPORT INFORMATION
  Report Type: 
  Country: None (occurrence: None)
  Receive Date: 20100121
  Receipt Date: 20100111
  Transmission Date: 20100710
  Serious: Yes (Death)
  Sender: FDA-Public Use
  Company Number: 004579

PATIENT
  Age: 26 Year
  Sex: Male

DRUGS (9)
  1. ALPRAZOLAM [Suspect]
  2. ACETAMINOPHEN AND HYDROCODONE BITARTRATE [Suspect]
  3. METHADONE HCL [Suspect]
  4. ACETAMINOPHEN- PROPOXYPHENE HCL TAB [Suspect]
  5. ETHANOL [Suspect]
  6. DIAZEPAM [Suspect]
  7. PHENOBARBITAL [Concomitant]
  8. ZOLPIDEM [Concomitant]
  9. LORAZEPAM [Concomitant]

REACTIONS (3)
  - CARDIAC ARREST [None]
  - COMPLETED SUICIDE [None]
  - RESPIRATORY ARREST [None]
